FAERS Safety Report 8435716-3 (Version None)
Quarter: 2012Q2

REPORT INFORMATION
  Report Type: 
  Country: None (occurrence: None)
  Receive Date: 20120614
  Receipt Date: 20120607
  Transmission Date: 20120825
  Serious: Yes (Hospitalization)
  Sender: FDA-Public Use
  Company Number: US-PFIZER INC-2012138512

PATIENT
  Sex: Male
  Weight: 73.016 kg

DRUGS (6)
  1. ADVIL [Concomitant]
     Dosage: UNK
  2. SUTENT [Suspect]
     Dosage: 25 MG, UNK
     Dates: start: 20120410, end: 20120410
  3. NORCO [Concomitant]
     Dosage: UNK
  4. LISINOPRIL [Concomitant]
     Indication: BLOOD PRESSURE
     Dosage: UNK
  5. SUTENT [Suspect]
     Indication: PANCREATIC NEUROENDOCRINE TUMOUR
     Dosage: 12.5 MG, UNK
     Dates: start: 20120409, end: 20120409
  6. SUTENT [Suspect]
     Dosage: 50 MG, UNK
     Dates: start: 20120411, end: 20120531

REACTIONS (8)
  - DIARRHOEA [None]
  - PLATELET COUNT DECREASED [None]
  - HEADACHE [None]
  - MALAISE [None]
  - URINARY TRACT INFECTION [None]
  - WEIGHT DECREASED [None]
  - BLOOD PRESSURE ABNORMAL [None]
  - STOMATITIS [None]
